FAERS Safety Report 7244037-6 (Version None)
Quarter: 2011Q1

REPORT INFORMATION
  Report Type: 
  Country: None (occurrence: None)
  Receive Date: 20110125
  Receipt Date: 20110112
  Transmission Date: 20110831
  Serious: No
  Sender: FDA-Public Use
  Company Number: US-ELI_LILLY_AND_COMPANY-US200907003067

PATIENT
  Sex: Female
  Weight: 68.934 kg

DRUGS (5)
  1. COUMADIN [Concomitant]
     Dosage: UNK, UNKNOWN
     Route: 065
  2. ERGOCALCIFEROL [Concomitant]
  3. LASIX [Concomitant]
  4. FORTEO [Suspect]
     Indication: OSTEOPOROSIS
     Dosage: 20 UG, DAILY (1/D)
     Route: 058
     Dates: start: 20090519
  5. METFORMIN HCL [Concomitant]

REACTIONS (5)
  - NAUSEA [None]
  - GAIT DISTURBANCE [None]
  - MUSCULAR WEAKNESS [None]
  - PAIN [None]
  - SLEEP DISORDER DUE TO A GENERAL MEDICAL CONDITION [None]
